FAERS Safety Report 4357995-4 (Version None)
Quarter: 2004Q2

REPORT INFORMATION
  Report Type: 
  Country: None (occurrence: None)
  Receive Date: 20040511
  Receipt Date: 20040426
  Transmission Date: 20050107
  Serious: Yes (Other)
  Sender: FDA-Public Use
  Company Number: A0508499A

PATIENT
  Age: 40 Year
  Sex: Female

DRUGS (3)
  1. NICODERM CQ [Suspect]
     Indication: EX-SMOKER
     Dosage: 14 MG, SINGLE DOSE, TRANSDERMAL
     Route: 062
     Dates: start: 20040422, end: 20040422
  2. PROPYLTHIOURACIL [Concomitant]
  3. ACETAMINOPHEN [Concomitant]

REACTIONS (9)
  - ANXIETY [None]
  - APPLICATION SITE DERMATITIS [None]
  - APPLICATION SITE PRURITUS [None]
  - BLOOD PRESSURE INCREASED [None]
  - DISTURBANCE IN ATTENTION [None]
  - DIZZINESS [None]
  - INSOMNIA [None]
  - NAUSEA [None]
  - TREMOR [None]
